FAERS Safety Report 6702707-X (Version None)
Quarter: 2010Q2

REPORT INFORMATION
  Report Type: 
  Country: None (occurrence: None)
  Receive Date: 20100429
  Receipt Date: 20100416
  Transmission Date: 20101027
  Serious: No
  Sender: FDA-Public Use
  Company Number: US-B.I. PHARMACEUTICALS,INC./RIDGEFIELD-2010-BP-03572BP

PATIENT
  Sex: Male

DRUGS (15)
  1. SPIRIVA [Suspect]
     Indication: CHRONIC OBSTRUCTIVE PULMONARY DISEASE
     Dosage: 18 MCG
     Route: 055
  2. ALBUTEROL SULFATE AUTOHALER [Concomitant]
  3. LIPO-FLAVONOID B. COMPLEX SUPPLEMENT [Concomitant]
  4. SYMBICORT [Concomitant]
  5. SIMVASTATIN [Concomitant]
  6. ASPIRIN [Concomitant]
  7. LANTUS [Concomitant]
  8. HUMALOG [Concomitant]
  9. POTASSIUM [Concomitant]
  10. AVAPRO [Concomitant]
  11. ALLOPURINOL [Concomitant]
  12. LEVOTHYROXINE SODIUM [Concomitant]
  13. METOLAZONE [Concomitant]
  14. TOBRAMYCIN [Concomitant]
  15. DEXAMETH OPTH [Concomitant]

REACTIONS (1)
  - DYSPNOEA [None]
